FAERS Safety Report 8862049 (Version 2)
Quarter: 2012Q4

REPORT INFORMATION
  Report Type: 
  Country: US (occurrence: US)
  Receive Date: 20121026
  Receipt Date: 20121212
  Transmission Date: 20130627
  Serious: Yes (Other)
  Sender: FDA-Public Use
  Company Number: US-PFIZER INC-2012268309

PATIENT
  Age: 41 Year
  Sex: Female
  Weight: 63.49 kg

DRUGS (5)
  1. CHANTIX [Suspect]
     Indication: SMOKING CESSATION THERAPY
     Dosage: 0.5 mg, daily
     Dates: start: 201108, end: 201108
  2. CHANTIX [Suspect]
     Dosage: 1 mg, 2x/day
     Dates: start: 201108, end: 2011
  3. CHANTIX [Suspect]
     Dosage: Unk
     Dates: start: 2011, end: 201204
  4. SPIRIVA [Concomitant]
     Indication: CHRONIC OBSTRUCTIVE PULMONARY DISEASE
     Dosage: Unk, one puff daily
  5. CANNABIS SATIVA SUBSP. INDICA TOP [Concomitant]
     Indication: PAIN
     Dosage: UNK

REACTIONS (4)
  - Diabetes mellitus [Unknown]
  - Vitamin D deficiency [Unknown]
  - Dysgeusia [Unknown]
  - Therapeutic response unexpected [Unknown]
